FAERS Safety Report 4532944-4 (Version None)
Quarter: 2004Q4

REPORT INFORMATION
  Report Type: 
  Country: None (occurrence: None)
  Receive Date: 20041210
  Receipt Date: 20041026
  Transmission Date: 20050328
  Serious: Yes (Death)
  Sender: FDA-Public Use
  Company Number: M04-341-108

PATIENT
  Age: 67 Year
  Sex: Female
  Weight: 69 kg

DRUGS (9)
  1. VELCADE [Suspect]
     Indication: MULTIPLE MYELOMA
     Dosage: 2.30 MG, 2/WEEK, IV BOLUS
     Route: 040
     Dates: start: 20031006, end: 20040205
  2. LIPITOR [Concomitant]
  3. PREVACID [Concomitant]
  4. XANAX [Concomitant]
  5. CALCIUM [Concomitant]
  6. TENORETIC 100 [Concomitant]
  7. PREMARIN [Concomitant]
  8. MAGNESIUM SULFATE [Concomitant]
  9. MIRCO-K [Concomitant]

REACTIONS (1)
  - DISEASE PROGRESSION [None]
